FAERS Safety Report 17027922 (Version 2)
Quarter: 2019Q4

REPORT INFORMATION
  Report Type: Spontaneous
  Country: ES (occurrence: ES)
  Receive Date: 20191113
  Receipt Date: 20191126
  Transmission Date: 20200122
  Serious: Yes (Other)
  Sender: FDA-Public Use
  Company Number: ES-GLAXOSMITHKLINE-ES2019EME179604

PATIENT

DRUGS (1)
  1. ALQUEN [Suspect]
     Active Substance: RANITIDINE HYDROCHLORIDE
     Indication: PRODUCT USED FOR UNKNOWN INDICATION
     Dosage: UNK

REACTIONS (4)
  - Perinatal stroke [Recovered/Resolved]
  - Exposure via breast milk [Unknown]
  - Contraindicated product administered [Unknown]
  - Foetal exposure during pregnancy [Unknown]
